FAERS Safety Report 25152204 (Version 1)
Quarter: 2025Q2

REPORT INFORMATION
  Report Type: Spontaneous
  Country: US (occurrence: US)
  Receive Date: 20250402
  Receipt Date: 20250402
  Transmission Date: 20250717
  Serious: No
  Sender: VERTEX
  Company Number: US-VERTEX PHARMACEUTICALS-2025-004691

PATIENT
  Age: 46 Year
  Sex: Female

DRUGS (3)
  1. JOURNAVX [Suspect]
     Active Substance: SUZETRIGINE
     Indication: Pain
     Route: 048
     Dates: start: 20250317, end: 20250320
  2. IBUPROFEN [Concomitant]
     Active Substance: IBUPROFEN
     Indication: Surgery
     Dates: start: 20250317, end: 20250320
  3. TYLENOL [Concomitant]
     Active Substance: ACETAMINOPHEN
     Indication: Surgery
     Dates: start: 20250317, end: 20250320

REACTIONS (3)
  - Dizziness [Recovering/Resolving]
  - Fatigue [Recovering/Resolving]
  - Paraesthesia oral [Recovering/Resolving]

NARRATIVE: CASE EVENT DATE: 20250301
